FAERS Safety Report 8620682-8 (Version None)
Quarter: 2012Q3

REPORT INFORMATION
  Report Type: 
  Country: None (occurrence: None)
  Receive Date: 20120824
  Receipt Date: 20120810
  Transmission Date: 20120928
  Serious: Yes (Other)
  Sender: FDA-Public Use
  Company Number: JP-VERTEX PHARMACEUTICAL INC.-AE-2012-005164

PATIENT
  Age: 67 Year
  Sex: Female

DRUGS (17)
  1. PEG-INTRON [Suspect]
     Dosage: 0.94 A?G/KG, UNK
     Route: 058
     Dates: start: 20120406, end: 20120426
  2. RIBAVIRIN [Suspect]
     Dosage: 200 MG, QD
     Route: 048
     Dates: start: 20120316, end: 20120419
  3. DIOVAN [Concomitant]
     Dosage: 80 MG, QD
     Route: 048
  4. VX-950 [Suspect]
     Dosage: 750 MG, QD
     Route: 048
     Dates: start: 20120323, end: 20120413
  5. RIBAVIRIN [Suspect]
     Dosage: 400 MG, QD
     Route: 048
     Dates: start: 20120224, end: 20120315
  6. RIBAVIRIN [Suspect]
     Dosage: 400 MG, QD
     Route: 048
     Dates: start: 20120420, end: 20120802
  7. PEG-INTRON [Suspect]
     Dosage: 1.3 A?G/KG, UNK
     Route: 058
     Dates: start: 20120330
  8. URSO                               /00465701/ [Concomitant]
     Dosage: 600 MG, QD
     Route: 048
     Dates: end: 20120224
  9. INNOLET [Concomitant]
     Dosage: 15 DF, QD
     Route: 058
  10. VX-950 [Suspect]
     Dosage: 1500 MG, QD
     Route: 048
     Dates: start: 20120224, end: 20120322
  11. PEG-INTRON [Suspect]
     Dosage: 1.13 A?G/KG, UNK
     Route: 058
     Dates: start: 20120427, end: 20120510
  12. AMLODIPINE [Concomitant]
     Dosage: 5 MG, QD
     Route: 048
  13. VX-950 [Suspect]
     Indication: HEPATITIS C
     Dosage: 2250 MG, QD
     Dates: start: 20120217, end: 20120223
  14. RIBAVIRIN [Suspect]
     Indication: HEPATITIS C
     Dosage: 600 MG, QD
     Route: 048
     Dates: start: 20120217, end: 20120223
  15. PEG-INTRON [Suspect]
     Dosage: 1.3 A?G/KG, UNK
     Route: 058
     Dates: start: 20120511, end: 20120802
  16. PEG-INTRON [Suspect]
     Indication: HEPATITIS C
     Dosage: 1.5 A?G/KG, UNK
     Route: 058
     Dates: start: 20120217, end: 20120329
  17. PEG-INTRON [Suspect]
     Route: 051
     Dates: start: 20120511

REACTIONS (6)
  - DECREASED APPETITE [None]
  - HYPERURICAEMIA [None]
  - ANAEMIA [None]
  - PLATELET COUNT DECREASED [None]
  - BLOOD CREATININE INCREASED [None]
  - NAUSEA [None]
